FAERS Safety Report 25856166 (Version 1)
Quarter: 2025Q3

REPORT INFORMATION
  Report Type: Spontaneous
  Country: US (occurrence: US)
  Receive Date: 20250928
  Receipt Date: 20250928
  Transmission Date: 20251021
  Serious: No
  Sender: MERCK SHARP & DOHME LLC
  Company Number: US-009507513-2325907

PATIENT
  Age: 33 Year
  Sex: Male

DRUGS (2)
  1. POSACONAZOLE [Suspect]
     Active Substance: POSACONAZOLE
     Indication: Disseminated coccidioidomycosis
  2. AMPHOTERICIN B [Concomitant]
     Active Substance: AMPHOTERICIN B
     Indication: Disseminated coccidioidomycosis
     Route: 042

REACTIONS (1)
  - Product use in unapproved indication [Unknown]
